FAERS Safety Report 16629927 (Version 5)
Quarter: 2019Q3

REPORT INFORMATION
  Report Type: Report from Study
  Country: SE (occurrence: SE)
  Receive Date: 20190725
  Receipt Date: 20190828
  Transmission Date: 20191004
  Serious: Yes (Other)
  Sender: FDA-Public Use
  Company Number: SE-BRISTOL-MYERS SQUIBB COMPANY-BMS-2019-055365

PATIENT
  Age: 82 Year
  Sex: Female

DRUGS (1)
  1. NIVOLUMAB [Suspect]
     Active Substance: NIVOLUMAB
     Indication: NON-SMALL CELL LUNG CANCER
     Dosage: UNK
     Route: 065

REACTIONS (14)
  - Mucous stools [Unknown]
  - Haematochezia [Unknown]
  - Decreased appetite [Unknown]
  - Eye pain [Unknown]
  - Nausea [Unknown]
  - Gait disturbance [Unknown]
  - Cough [Unknown]
  - Ocular hyperaemia [Unknown]
  - Diarrhoea [Unknown]
  - Fatigue [Unknown]
  - Vomiting [Unknown]
  - Dyspnoea [Unknown]
  - Vision blurred [Unknown]
  - Balance disorder [Unknown]

NARRATIVE: CASE EVENT DATE: 20190522
